FAERS Safety Report 5682325-5 (Version None)
Quarter: 2008Q1

REPORT INFORMATION
  Report Type: 
  Country: None (occurrence: None)
  Receive Date: 20080327
  Receipt Date: 20071004
  Transmission Date: 20080703
  Serious: No
  Sender: FDA-Public Use
  Company Number: US-BAUSCH-2007BL003609

PATIENT
  Age: 44 Year
  Sex: Female

DRUGS (1)
  1. ALREX [Suspect]
     Indication: EYE ALLERGY
     Route: 047
     Dates: start: 20071002, end: 20071002

REACTIONS (3)
  - DRUG HYPERSENSITIVITY [None]
  - DYSPNOEA [None]
  - PRURITUS GENERALISED [None]
